FAERS Safety Report 21519841 (Version 2)
Quarter: 2023Q1

REPORT INFORMATION
  Report Type: Report from Study
  Country: US (occurrence: US)
  Receive Date: 20221028
  Receipt Date: 20230128
  Transmission Date: 20230417
  Serious: Yes (Other)
  Sender: FDA-Public Use
  Company Number: US-ABBVIE-4178341

PATIENT
  Age: 68 Year
  Sex: Male
  Weight: 115.2 kg

DRUGS (1)
  1. SKYRIZI [Suspect]
     Active Substance: RISANKIZUMAB-RZAA
     Indication: Product used for unknown indication
     Dosage: 150 MILLIGRAM
     Route: 058

REACTIONS (1)
  - Arterial stent insertion [Recovered/Resolved]

NARRATIVE: CASE EVENT DATE: 20221013
